FAERS Safety Report 9778829 (Version 2)
Quarter: 2013Q4

REPORT INFORMATION
  Report Type: Report from Study
  Country: BE (occurrence: BE)
  Receive Date: 20131223
  Receipt Date: 20131223
  Transmission Date: 20140711
  Serious: Yes (Other)
  Sender: FDA-Public Use
  Company Number: BE-ROCHE-GNE266221

PATIENT
  Sex: Female

DRUGS (4)
  1. OMALIZUMAB [Suspect]
     Indication: ASTHMA
     Route: 058
  2. OMALIZUMAB [Suspect]
     Route: 058
     Dates: start: 2008
  3. OMALIZUMAB [Suspect]
     Route: 058
     Dates: start: 201306
  4. SYMBICORT TURBUHALER [Concomitant]

REACTIONS (4)
  - Blood creatine phosphokinase increased [Not Recovered/Not Resolved]
  - Myalgia [Not Recovered/Not Resolved]
  - Arthralgia [Recovered/Resolved]
  - Asthma [Unknown]
